FAERS Safety Report 4987205-6 (Version None)
Quarter: 2006Q2

REPORT INFORMATION
  Report Type: 
  Country: None (occurrence: None)
  Receive Date: 20060427
  Receipt Date: 20060427
  Transmission Date: 20061013
  Serious: No
  Sender: FDA-Public Use
  Company Number: None

PATIENT
  Age: 53 Year
  Sex: Female

DRUGS (1)
  1. MS CONTIN [Suspect]

REACTIONS (3)
  - DYSPHORIA [None]
  - NIGHTMARE [None]
  - SLEEP DISORDER [None]
